FAERS Safety Report 18923411 (Version 1)
Quarter: 2021Q1

REPORT INFORMATION
  Report Type: Spontaneous
  Country: CA (occurrence: CA)
  Receive Date: 20210222
  Receipt Date: 20210222
  Transmission Date: 20210420
  Serious: Yes (Life-Threatening, Hospitalization, Other)
  Sender: FDA-Public Use
  Company Number: CA-TEVA-2021-CA-1881019

PATIENT
  Age: 15 Year
  Sex: Female
  Weight: 95 kg

DRUGS (77)
  1. CYTARABINE INJECTION [Suspect]
     Active Substance: CYTARABINE
     Dosage: 3.5ML ,  ONCE
     Route: 037
  2. AMPHOTERICIN B. [Concomitant]
     Active Substance: AMPHOTERICIN B
  3. CALCIUM [Concomitant]
     Active Substance: CALCIUM
  4. CEPHALEXIN. [Concomitant]
     Active Substance: CEPHALEXIN
  5. FUROSEMIDE. [Concomitant]
     Active Substance: FUROSEMIDE
  6. HYDROXYZINE [Concomitant]
     Active Substance: HYDROXYZINE HYDROCHLORIDE
  7. KETAMINE [Concomitant]
     Active Substance: KETAMINE
  8. OXYBUTYNIN. [Concomitant]
     Active Substance: OXYBUTYNIN CHLORIDE
     Route: 065
  9. ALLOPURINOL. [Concomitant]
     Active Substance: ALLOPURINOL
  10. BETAMETHASONE. [Concomitant]
     Active Substance: BETAMETHASONE
  11. CEFAZOLIN [Concomitant]
     Active Substance: CEFAZOLIN
  12. DOXYCYCLINE. [Concomitant]
     Active Substance: DOXYCYCLINE
  13. LEUPROLIDE [Concomitant]
     Active Substance: LEUPROLIDE
  14. MAGNESIUM [Concomitant]
     Active Substance: MAGNESIUM
  15. MELATONIN [Concomitant]
     Active Substance: MELATONIN
  16. SPIRONOLACTONE. [Concomitant]
     Active Substance: SPIRONOLACTONE
  17. SUCRALFATE. [Concomitant]
     Active Substance: SUCRALFATE
  18. ETOPOSIDE INJECTION,USP [Suspect]
     Active Substance: ETOPOSIDE
     Indication: LYMPHADENOPATHY
     Dosage: 2520 MILLIGRAM DAILY;
     Route: 042
  19. ETOPOSIDE INJECTION,USP [Suspect]
     Active Substance: ETOPOSIDE
     Dosage: 2460 MILLIGRAM DAILY;
     Route: 042
  20. DAUNORUBICIN HYDROCHLORIDE FOR INJECTION [Suspect]
     Active Substance: DAUNORUBICIN HYDROCHLORIDE
     Dosage: 9888 MILLIGRAM DAILY; POWDER FOR SOLUTION INTRAVENOUS
     Route: 042
  21. DAUNORUBICIN HYDROCHLORIDE FOR INJECTION [Suspect]
     Active Substance: DAUNORUBICIN HYDROCHLORIDE
     Dosage: 10080 MILLIGRAM DAILY; POWDER FOR SOLUTION INTRAVENOUS
     Route: 042
  22. CLINDAMYCIN. [Concomitant]
     Active Substance: CLINDAMYCIN
  23. ACETAMINOPHEN. [Concomitant]
     Active Substance: ACETAMINOPHEN
  24. AZACTAM INJ [Concomitant]
  25. FENTANYL. [Concomitant]
     Active Substance: FENTANYL
  26. FLUCONAZOLE. [Concomitant]
     Active Substance: FLUCONAZOLE
  27. HEPARIN CALCIUM [Concomitant]
     Active Substance: HEPARIN CALCIUM
  28. LANSOPRAZOLE. [Concomitant]
     Active Substance: LANSOPRAZOLE
  29. LEVOFLOXACIN. [Concomitant]
     Active Substance: LEVOFLOXACIN
  30. MYCAMINE [Concomitant]
     Active Substance: MICAFUNGIN SODIUM
  31. SENNOSIDES. [Concomitant]
     Active Substance: SENNOSIDES
  32. TRANEXAMIC ACID. [Concomitant]
     Active Substance: TRANEXAMIC ACID
  33. VALACYCLOVIR [Concomitant]
     Active Substance: VALACYCLOVIR HYDROCHLORIDE
  34. AMITRIPTYLINE HYDROCHLORIDE/PERPHENAZINE [Concomitant]
     Active Substance: AMITRIPTYLINE HYDROCHLORIDE\PERPHENAZINE
  35. CLOTRIMAZOLE. [Concomitant]
     Active Substance: CLOTRIMAZOLE
  36. HYDROMORPHONE [Concomitant]
     Active Substance: HYDROMORPHONE
  37. MORPHINE [Concomitant]
     Active Substance: MORPHINE
  38. NALOXONE [Concomitant]
     Active Substance: NALOXONE
  39. NIFEDIPINE. [Concomitant]
     Active Substance: NIFEDIPINE
  40. SULFADIAZINE. [Concomitant]
     Active Substance: SULFADIAZINE
  41. TOBRAMYCIN. [Concomitant]
     Active Substance: TOBRAMYCIN
  42. ZINC. [Concomitant]
     Active Substance: ZINC
  43. CYTARABINE INJECTION [Suspect]
     Active Substance: CYTARABINE
     Dosage: 3.5ML ONCE
     Route: 037
  44. DAUNORUBICIN HYDROCHLORIDE FOR INJECTION [Suspect]
     Active Substance: DAUNORUBICIN HYDROCHLORIDE
     Dosage: 10080 MILLIGRAM DAILY; POWDER FOR SOLUTION INTRAVENOUS
     Route: 042
  45. ALTEPLASE (T?PA) [Concomitant]
  46. CETIRIZINE [Concomitant]
     Active Substance: CETIRIZINE HYDROCHLORIDE
  47. IBUPROFEN. [Concomitant]
     Active Substance: IBUPROFEN
  48. PANTOPRAZOLE [Concomitant]
     Active Substance: PANTOPRAZOLE
  49. PREGABALIN. [Concomitant]
     Active Substance: PREGABALIN
  50. ZINECARD [Concomitant]
     Active Substance: DEXRAZOXANE HYDROCHLORIDE
  51. CYTARABINE INJECTION [Suspect]
     Active Substance: CYTARABINE
     Dosage: 410 MILLIGRAM DAILY;
     Route: 042
  52. DAUNORUBICIN HYDROCHLORIDE FOR INJECTION [Suspect]
     Active Substance: DAUNORUBICIN HYDROCHLORIDE
     Dosage: 9888 MILLIGRAM DAILY; POWDER FOR SOLUTION INTRAVENOUS
     Route: 042
  53. DOCUSATE SODIUM. [Concomitant]
     Active Substance: DOCUSATE SODIUM
  54. FAMOTIDINE. [Concomitant]
     Active Substance: FAMOTIDINE
  55. GABAPENTIN. [Concomitant]
     Active Substance: GABAPENTIN
  56. METHADONE [Concomitant]
     Active Substance: METHADONE HYDROCHLORIDE
  57. NABILONE [Concomitant]
     Active Substance: NABILONE
  58. POLYETHYLENE GLYCOL [Concomitant]
     Active Substance: POLYETHYLENE GLYCOLS
  59. SODIUM PHOSPHATE [Concomitant]
     Active Substance: SODIUM PHOSPHATE
     Dosage: SOLUTION
  60. TRIMETHOPRIMSULFAMETHOXAZOLE [Concomitant]
     Active Substance: SULFAMETHOXAZOLE\TRIMETHOPRIM
  61. URSODEOXYCHOLIC ACID [Concomitant]
     Active Substance: URSODIOL
  62. CLONIDINE. [Concomitant]
     Active Substance: CLONIDINE
  63. HYDROCORTISONE. [Concomitant]
     Active Substance: HYDROCORTISONE
  64. METRONIDAZOLE. [Concomitant]
     Active Substance: METRONIDAZOLE
  65. POTASSIUM [Concomitant]
     Active Substance: POTASSIUM
  66. RANITIDINE. [Concomitant]
     Active Substance: RANITIDINE
  67. ETOPOSIDE INJECTION,USP [Suspect]
     Active Substance: ETOPOSIDE
     Dosage: 2520 MILLIGRAM DAILY;
     Route: 042
  68. CYTARABINE INJECTION [Suspect]
     Active Substance: CYTARABINE
     Indication: LYMPHADENOPATHY
     Dosage: 420 MILLIGRAM DAILY;
     Route: 042
  69. CYTARABINE INJECTION [Suspect]
     Active Substance: CYTARABINE
     Dosage: 3.5ML, ONCE
     Route: 037
  70. CYTARABINE INJECTION [Suspect]
     Active Substance: CYTARABINE
     Dosage: 3.5ML, ONCE
     Route: 037
  71. CYTARABINE INJECTION [Suspect]
     Active Substance: CYTARABINE
     Dosage: 4200 MILLIGRAM DAILY;
     Route: 042
  72. DAUNORUBICIN HYDROCHLORIDE FOR INJECTION [Suspect]
     Active Substance: DAUNORUBICIN HYDROCHLORIDE
     Indication: LYMPHADENOPATHY
     Dosage: 10080 MILLIGRAM DAILY;
     Route: 042
  73. DAUNORUBICIN HYDROCHLORIDE FOR INJECTION [Suspect]
     Active Substance: DAUNORUBICIN HYDROCHLORIDE
     Dosage: POWDER FOR SOLUTION INTRAVENOUS
     Route: 042
  74. MITOXANTRONE [Suspect]
     Active Substance: MITOXANTRONE HYDROCHLORIDE
     Indication: LYMPHADENOPATHY
     Dosage: 3000 MILLIGRAM DAILY;
     Route: 042
  75. ENOXAPARIN [Concomitant]
     Active Substance: ENOXAPARIN
  76. PENTAMIDINE ISETHIONATE INJ 300MG/VIAL BP [Concomitant]
  77. PHYTONADIONE. [Concomitant]
     Active Substance: PHYTONADIONE

REACTIONS (6)
  - Vomiting [Not Recovered/Not Resolved]
  - Nausea [Not Recovered/Not Resolved]
  - Odynophagia [Not Recovered/Not Resolved]
  - Pancreatitis acute [Not Recovered/Not Resolved]
  - Aplastic anaemia [Not Recovered/Not Resolved]
  - Acute febrile neutrophilic dermatosis [Not Recovered/Not Resolved]
